FAERS Safety Report 21410505 (Version 1)
Quarter: 2022Q4

REPORT INFORMATION
  Report Type: Spontaneous
  Country: US (occurrence: None)
  Receive Date: 20221003
  Receipt Date: 20221003
  Transmission Date: 20230113
  Serious: Yes (Other)
  Sender: FDA-Public Use
  Company Number: None

PATIENT
  Sex: Female

DRUGS (6)
  1. GLATIRAMER [Suspect]
     Active Substance: GLATIRAMER
     Indication: Multiple sclerosis
     Dosage: INJECT 40 MG (1 SYRINGE) UNDER THE SKIN (SUBCUTANEOUS INJECTION) THREE TIMES PER WEEK?
     Route: 058
     Dates: start: 20190416
  2. AMANTADINE [Concomitant]
  3. EFFEXOR XR [Concomitant]
  4. MODAFINIL [Concomitant]
  5. SUMATRIPTAN [Concomitant]
  6. YAZ [Concomitant]

REACTIONS (1)
  - Intentional dose omission [None]
